FAERS Safety Report 5706239-7 (Version None)
Quarter: 2008Q2

REPORT INFORMATION
  Report Type: 
  Country: None (occurrence: None)
  Receive Date: 20080415
  Receipt Date: 20080408
  Transmission Date: 20081010
  Serious: Yes (Life-Threatening, Hospitalization, Disabling)
  Sender: FDA-Public Use
  Company Number: GB-BOEHRINGER INGELHEIM GMBH, GERMANY-2008-BP-05477RO

PATIENT
  Age: 3 Year
  Sex: Female

DRUGS (8)
  1. METHADONE HCL [Suspect]
  2. ACYCLOVIR [Concomitant]
     Indication: ENCEPHALITIS
     Route: 042
  3. ERYTHROMYCIN [Concomitant]
     Indication: ENCEPHALITIS
     Route: 042
  4. CEFTRIAXONE [Concomitant]
     Indication: ENCEPHALITIS
     Route: 042
  5. AMOXICILLIN [Concomitant]
     Indication: ENCEPHALITIS
     Route: 042
  6. DEXAMETHASONE [Concomitant]
     Indication: ENCEPHALITIS
  7. INOTROPIC SUPPORT [Concomitant]
     Indication: ENCEPHALITIS
  8. FLUID [Concomitant]
     Indication: ENCEPHALITIS

REACTIONS (14)
  - AREFLEXIA [None]
  - DYSPNOEA [None]
  - DYSTONIA [None]
  - ENCEPHALITIS [None]
  - GLASGOW COMA SCALE ABNORMAL [None]
  - HEART RATE INCREASED [None]
  - HYPOTENSION [None]
  - HYPOTHERMIA [None]
  - METABOLIC ACIDOSIS [None]
  - PUPIL FIXED [None]
  - SPASTIC DIPLEGIA [None]
  - THERAPEUTIC AGENT TOXICITY [None]
  - VISUAL DISTURBANCE [None]
  - WHITE BLOOD CELL COUNT INCREASED [None]
